FAERS Safety Report 7915052-1 (Version None)
Quarter: 2011Q4

REPORT INFORMATION
  Report Type: 
  Country: None (occurrence: None)
  Receive Date: 20111115
  Receipt Date: 20111107
  Transmission Date: 20120403
  Serious: Yes (Hospitalization, Other)
  Sender: FDA-Public Use
  Company Number: JP-BRISTOL-MYERS SQUIBB COMPANY-15462476

PATIENT
  Age: 27 Year
  Sex: Female
  Weight: 60 kg

DRUGS (4)
  1. ALOSENN [Concomitant]
     Dosage: GRANULES
     Dates: start: 20081120
  2. MAGMITT [Concomitant]
     Dosage: FORMU: TAB
     Dates: start: 20081129, end: 20081205
  3. FERROUS CITRATE [Concomitant]
     Dosage: TAB
     Dates: start: 20081207
  4. ABILIFY [Suspect]
     Indication: SCHIZOPHRENIA
     Route: 048
     Dates: start: 20080701, end: 20090913

REACTIONS (3)
  - THREATENED LABOUR [None]
  - NORMAL NEWBORN [None]
  - PREGNANCY [None]
